FAERS Safety Report 5123086-8 (Version None)
Quarter: 2006Q4

REPORT INFORMATION
  Report Type: 
  Country: None (occurrence: None)
  Receive Date: 20061004
  Receipt Date: 20061004
  Transmission Date: 20070319
  Serious: Yes (Hospitalization)
  Sender: FDA-Public Use
  Company Number: None

PATIENT
  Age: 57 Year
  Sex: Male

DRUGS (1)
  1. LITHIUM CARBONATE [Suspect]
     Indication: MENTAL DISORDER
     Dosage: 900MG PO QHS
     Route: 048

REACTIONS (2)
  - BLOOD SODIUM INCREASED [None]
  - DIABETES INSIPIDUS [None]
